FAERS Safety Report 16025768 (Version 2)
Quarter: 2019Q1

REPORT INFORMATION
  Report Type: Spontaneous
  Country: TR (occurrence: TR)
  Receive Date: 20190302
  Receipt Date: 20190311
  Transmission Date: 20190418
  Serious: Yes (Life-Threatening, Hospitalization, Other)
  Sender: FDA-Public Use
  Company Number: TR-ACCORD-109935

PATIENT
  Age: 61 Year
  Sex: Male
  Weight: 65 kg

DRUGS (3)
  1. METFORMIN [Concomitant]
     Active Substance: METFORMIN HYDROCHLORIDE
     Indication: DIABETES MELLITUS
     Dosage: 2X500 MG/DAY ORALLY
     Route: 048
  2. METHOTREXATE. [Suspect]
     Active Substance: METHOTREXATE
     Indication: PEMPHIGUS
     Dosage: 10 MG/WEEK, STARTED ON DAY 17
  3. IMMUNOGLOBULIN HUMAN NORMAL [Suspect]
     Active Substance: HUMAN IMMUNOGLOBULIN G
     Indication: PEMPHIGUS
     Dosage: 0.4 G/KG/DAY FOR FIVE CONSECUTIVE DAYS
     Route: 042

REACTIONS (1)
  - Endocarditis [Recovered/Resolved]
